FAERS Safety Report 9109163 (Version 2)
Quarter: 2013Q1

REPORT INFORMATION
  Report Type: Report from Study
  Country: US (occurrence: US)
  Receive Date: 20130222
  Receipt Date: 20130327
  Transmission Date: 20140127
  Serious: Yes (Hospitalization)
  Sender: FDA-Public Use
  Company Number: US-ACTELION-A-NJ2013-78889

PATIENT
  Age: 54 Year
  Sex: Male

DRUGS (3)
  1. VELETRI [Suspect]
     Indication: PULMONARY ARTERIAL HYPERTENSION
     Dosage: 21.5 NG/KG, PER MIN
     Route: 041
     Dates: start: 20110624
  2. TRACLEER [Suspect]
     Indication: PULMONARY ARTERIAL HYPERTENSION
     Dosage: UNK
     Route: 048
  3. SILDENAFIL [Concomitant]

REACTIONS (4)
  - Device related infection [Recovered/Resolved]
  - Pseudomonas test positive [Recovered/Resolved]
  - Streptococcus test positive [Recovered/Resolved]
  - Catheter placement [Recovered/Resolved]
